FAERS Safety Report 7749940-6 (Version None)
Quarter: 2011Q3

REPORT INFORMATION
  Report Type: 
  Country: None (occurrence: None)
  Receive Date: 20110912
  Receipt Date: 20110826
  Transmission Date: 20111222
  Serious: Yes (Life-Threatening, Hospitalization)
  Sender: FDA-Public Use
  Company Number: 2011SGN00174

PATIENT
  Age: 49 Year
  Sex: Female
  Weight: 92.1 kg

DRUGS (17)
  1. NORVASC [Concomitant]
  2. COMPAZINE [Concomitant]
  3. SGN-35 (CAC10-VCMMAE) INJECTION [Suspect]
     Indication: MYCOSIS FUNGOIDES STAGE IV
     Dosage: 1.8 MG/KG, Q2LD, INTRAVENOUS
     Route: 042
     Dates: start: 20110802, end: 20110802
  4. ZOVIRAX [Concomitant]
  5. ATIVAN [Concomitant]
  6. OXYCONTIN [Concomitant]
  7. BACTROBAN (MUPIROCIN CALCIUM) [Concomitant]
  8. PREVACID [Concomitant]
  9. COLACE (DOCUSATE SODIUM) [Concomitant]
  10. DIFLUCAN [Concomitant]
  11. PROGRAF [Concomitant]
  12. MAGNESIUM (MAGNESIUM) [Concomitant]
  13. VICODIN [Concomitant]
  14. NEURONTIN [Concomitant]
  15. AMBIEN [Concomitant]
  16. SPECTAZOLE (ECONAZOLE NITRATE) [Concomitant]
  17. ZEASORB (ALDIOXA, CELLULOSE MICROCRYSTALLINE, CHLOROXYLENOL) [Concomitant]

REACTIONS (21)
  - ABDOMINAL PAIN [None]
  - VOMITING [None]
  - DYSPNOEA [None]
  - LETHARGY [None]
  - TONGUE DISORDER [None]
  - STAPHYLOCOCCAL INFECTION [None]
  - DRY SKIN [None]
  - RENAL FAILURE ACUTE [None]
  - THROMBOCYTOPENIA [None]
  - WHITE BLOOD CELL COUNT DECREASED [None]
  - CHEST PAIN [None]
  - FEBRILE NEUTROPENIA [None]
  - HYPERKALAEMIA [None]
  - TACHYCARDIA [None]
  - SEPSIS [None]
  - NAUSEA [None]
  - THIRST [None]
  - OEDEMA PERIPHERAL [None]
  - FATIGUE [None]
  - DIARRHOEA [None]
  - MENTAL STATUS CHANGES [None]
